FAERS Safety Report 22354045 (Version 2)
Quarter: 2024Q2

REPORT INFORMATION
  Report Type: Spontaneous
  Country: US (occurrence: US)
  Receive Date: 20230523
  Receipt Date: 20240419
  Transmission Date: 20240716
  Serious: Yes (Other)
  Sender: FDA-Public Use
  Company Number: US-TITAN PHARMACEUTICALS-2023TAN00053

PATIENT
  Age: 36 Year
  Sex: Female

DRUGS (2)
  1. BUPRENORPHINE\NALOXONE [Suspect]
     Active Substance: BUPRENORPHINE\NALOXONE
     Indication: Drug use disorder
     Dosage: 16 MG/4 MG, 1X/DAY
     Route: 060
  2. LYBALVI [Suspect]
     Active Substance: OLANZAPINE\SAMIDORPHAN L-MALATE
     Indication: Product used for unknown indication
     Dosage: 20 MG/10 MG
     Route: 048

REACTIONS (2)
  - Drug interaction [Recovered/Resolved]
  - Drug withdrawal syndrome [Recovering/Resolving]
